FAERS Safety Report 9705769 (Version 1)
Quarter: 2013Q4

REPORT INFORMATION
  Report Type: Spontaneous
  Country: US (occurrence: US)
  Receive Date: 20131122
  Receipt Date: 20131122
  Transmission Date: 20140711
  Serious: No
  Sender: FDA-Public Use
  Company Number: US-GILEAD-2008-0017884

PATIENT
  Sex: Male
  Weight: 81.65 kg

DRUGS (13)
  1. LETAIRIS [Suspect]
     Indication: PULMONARY ARTERIAL HYPERTENSION
     Route: 048
     Dates: start: 20080802
  2. MULTIVITAMIN [Concomitant]
     Route: 048
  3. OXYGEN [Concomitant]
     Route: 055
  4. LASIX [Concomitant]
     Dosage: AT NIGHT
     Route: 048
  5. LISINOPRIL [Concomitant]
     Route: 048
  6. FEXOFENADINE [Concomitant]
     Route: 048
  7. ALBUTEROL [Concomitant]
     Dosage: 0.83 MG PER ML SOLN
     Route: 055
  8. GUAIFENESIN [Concomitant]
     Route: 048
  9. PRILOSEC [Concomitant]
     Route: 048
  10. CRESTOR [Concomitant]
     Route: 048
  11. NITROGLYCERIN [Concomitant]
     Route: 060
  12. POTASSIUM CHLORIDE [Concomitant]
     Dosage: AT NIGHT
     Route: 048
  13. VITAMIN C [Concomitant]
     Route: 048

REACTIONS (6)
  - Asthenia [Unknown]
  - Swelling face [Unknown]
  - Faeces discoloured [Unknown]
  - Fatigue [Unknown]
  - Erythema [Unknown]
  - Dyspnoea [Unknown]
